FAERS Safety Report 19858099 (Version 1)
Quarter: 2021Q3

REPORT INFORMATION
  Report Type: Spontaneous
  Country: FR (occurrence: FR)
  Receive Date: 20210920
  Receipt Date: 20210920
  Transmission Date: 20211014
  Serious: Yes (Hospitalization, Other)
  Sender: FDA-Public Use
  Company Number: FR-MYLANLABS-2021M1062894

PATIENT
  Age: 63 Year
  Sex: Male
  Weight: 80 kg

DRUGS (3)
  1. ETOPOSIDE MYLAN [Suspect]
     Active Substance: ETOPOSIDE
     Indication: RICHTER^S SYNDROME
     Dosage: 200 MILLIGRAM, QD
     Route: 042
     Dates: start: 20210412, end: 20210414
  2. GAZYVARO [Suspect]
     Active Substance: OBINUTUZUMAB
     Indication: RICHTER^S SYNDROME
     Dosage: 1000 MILLIGRAM, CYCLE
     Route: 042
     Dates: start: 20210412, end: 20210412
  3. CARBOPLATINE [Suspect]
     Active Substance: CARBOPLATIN
     Indication: RICHTER^S SYNDROME
     Dosage: 680 MILLIGRAM, CYCLE
     Route: 042
     Dates: start: 20210413, end: 20210413

REACTIONS (2)
  - Encephalopathy [Recovered/Resolved]
  - Aphasia [Recovered/Resolved]

NARRATIVE: CASE EVENT DATE: 20210416
